FAERS Safety Report 6469793-6 (Version None)
Quarter: 2009Q4

REPORT INFORMATION
  Report Type: 
  Country: None (occurrence: None)
  Receive Date: 20091203
  Receipt Date: 20091121
  Transmission Date: 20100525
  Serious: No
  Sender: FDA-Public Use
  Company Number: US-ELI_LILLY_AND_COMPANY-US200910004765

PATIENT
  Sex: Female
  Weight: 81.633 kg

DRUGS (5)
  1. CYMBALTA [Suspect]
     Indication: DEPRESSION
     Dosage: 60 MG, UNK
     Dates: start: 20091003, end: 20091010
  2. CYMBALTA [Suspect]
     Dosage: 1 D/F, UNK
  3. NORVASC [Concomitant]
  4. COUMADIN [Concomitant]
     Dosage: 1 D/F, UNK
     Route: 048
  5. COUMADIN [Concomitant]
     Dosage: 1 D/F, UNK

REACTIONS (3)
  - DRUG INTERACTION [None]
  - INTERNATIONAL NORMALISED RATIO INCREASED [None]
  - OEDEMA [None]
